FAERS Safety Report 13434924 (Version 3)
Quarter: 2017Q2

REPORT INFORMATION
  Report Type: Spontaneous
  Country: US (occurrence: US)
  Receive Date: 20170413
  Receipt Date: 20170525
  Transmission Date: 20170830
  Serious: No
  Sender: FDA-Public Use
  Company Number: US-PFIZER INC-2017142996

PATIENT
  Age: 77 Year
  Sex: Female
  Weight: 86.77 kg

DRUGS (17)
  1. SANDOSTATIN [Suspect]
     Active Substance: OCTREOTIDE ACETATE
     Dosage: 30 MG, UNK
  2. CARVEDILOL. [Concomitant]
     Active Substance: CARVEDILOL
     Dosage: 3.125 MG, UNK
  3. TRADJENTA [Concomitant]
     Active Substance: LINAGLIPTIN
     Dosage: 5 MG, UNK
  4. LEVOTHROID [Concomitant]
     Active Substance: LEVOTHYROXINE SODIUM
     Dosage: 0.112 UG, UNK
  5. CALCIUM [Concomitant]
     Active Substance: CALCIUM
     Dosage: UNK
  6. FLONASE [Concomitant]
     Active Substance: FLUTICASONE PROPIONATE
     Dosage: UNK
  7. SUTENT [Suspect]
     Active Substance: SUNITINIB MALATE
     Indication: CARCINOID TUMOUR
     Dosage: 50 MG, CYCLIC (2 WEEKS ON/1 WEEK OFF)
     Dates: start: 20170401
  8. ALLOPURINOL. [Concomitant]
     Active Substance: ALLOPURINOL
     Dosage: 100 MG, UNK
  9. ALBUTEROL. [Concomitant]
     Active Substance: ALBUTEROL
     Dosage: UNK
  10. SUTENT [Suspect]
     Active Substance: SUNITINIB MALATE
     Indication: BONE CANCER
  11. SANDOSTATIN [Suspect]
     Active Substance: OCTREOTIDE ACETATE
     Dosage: 40 MG, UNK
  12. FLOVENT HFA [Concomitant]
     Active Substance: FLUTICASONE PROPIONATE
     Dosage: 220 UG, UNK
  13. PREMARIN [Concomitant]
     Active Substance: ESTROGENS, CONJUGATED
     Dosage: 0.3 MG, UNK
  14. BABY ASPIRIN [Concomitant]
     Active Substance: ASPIRIN
     Dosage: UNK
  15. LOTRISONE [Concomitant]
     Active Substance: BETAMETHASONE DIPROPIONATE\CLOTRIMAZOLE
     Dosage: UNK, (1-0.05 %)
  16. VITAMIN D [Concomitant]
     Active Substance: CHOLECALCIFEROL
     Dosage: UNK
  17. XGEVA [Concomitant]
     Active Substance: DENOSUMAB
     Indication: METASTASES TO BONE
     Dosage: UNK UNK, MONTHLY

REACTIONS (3)
  - Fatigue [Not Recovered/Not Resolved]
  - Osteopenia [Unknown]
  - Neoplasm progression [Unknown]
